FAERS Safety Report 13990515 (Version 2)
Quarter: 2017Q3

REPORT INFORMATION
  Report Type: Spontaneous
  Country: US (occurrence: US)
  Receive Date: 20170920
  Receipt Date: 20170929
  Transmission Date: 20171128
  Serious: Yes (Hospitalization, Other)
  Sender: FDA-Public Use
  Company Number: PHEH2017US029710

PATIENT
  Age: 47 Year
  Sex: Female
  Weight: 96.6 kg

DRUGS (2)
  1. GILENYA [Suspect]
     Active Substance: FINGOLIMOD HYDROCHLORIDE
     Indication: MULTIPLE SCLEROSIS
     Dosage: 0.5 MG, QD
     Route: 048
     Dates: start: 20160325, end: 20170914
  2. GILENYA [Suspect]
     Active Substance: FINGOLIMOD HYDROCHLORIDE
     Dosage: 0.5 MG, QD
     Route: 048

REACTIONS (8)
  - Chest pain [Unknown]
  - Palpitations [Unknown]
  - Headache [Unknown]
  - Leukopenia [Unknown]
  - Normocytic anaemia [Not Recovered/Not Resolved]
  - Dyspnoea [Unknown]
  - White blood cell count decreased [Unknown]
  - Asthenia [Unknown]

NARRATIVE: CASE EVENT DATE: 20170825
